FAERS Safety Report 10970255 (Version 2)
Quarter: 2015Q2

REPORT INFORMATION
  Report Type: Spontaneous
  Country: US (occurrence: US)
  Receive Date: 20150331
  Receipt Date: 20150507
  Transmission Date: 20150821
  Serious: Yes (Death, Hospitalization)
  Sender: FDA-Public Use
  Company Number: US-ELI_LILLY_AND_COMPANY-US201501003409

PATIENT
  Age: 72 Year
  Sex: Male
  Weight: 83.9 kg

DRUGS (16)
  1. ADCIRCA [Suspect]
     Active Substance: TADALAFIL
     Indication: PULMONARY HYPERTENSION
     Dosage: 40 MG, QD
     Route: 048
     Dates: start: 20140414
  2. ASPIRIN                            /00002701/ [Concomitant]
     Active Substance: ASPIRIN
     Dosage: 81 MG, QD
  3. METOPROLOL [Concomitant]
     Active Substance: METOPROLOL
     Dosage: 25 MG, BID
  4. OMEPRAZOLE. [Concomitant]
     Active Substance: OMEPRAZOLE
     Dosage: 20 MG, QD
  5. CALCIUM ACETATE. [Concomitant]
     Active Substance: CALCIUM ACETATE
     Dosage: 667 MG, OTHER
  6. PRAVASTATIN [Concomitant]
     Active Substance: PRAVASTATIN\PRAVASTATIN SODIUM
  7. PREDNISONE. [Concomitant]
     Active Substance: PREDNISONE
     Dosage: 5 MG, UNK
  8. MUPIROCIN. [Concomitant]
     Active Substance: MUPIROCIN
  9. ZOVIRAX [Concomitant]
     Active Substance: ACYCLOVIR
     Indication: ORAL HERPES
     Dosage: UNK, PRN
  10. WARFARIN [Concomitant]
     Active Substance: WARFARIN
  11. ADCIRCA [Suspect]
     Active Substance: TADALAFIL
     Dosage: 40 MG, BID
     Route: 048
     Dates: start: 20140414
  12. LEVEMIR [Concomitant]
     Active Substance: INSULIN DETEMIR
     Dosage: 17 U, BID
  13. COUMADIN [Concomitant]
     Active Substance: WARFARIN SODIUM
     Dosage: 5 MG, QD
  14. MIDODRINE [Concomitant]
     Active Substance: MIDODRINE
     Dosage: 5 MG, OTHER
  15. NOVOLOG [Concomitant]
     Active Substance: INSULIN ASPART
     Indication: DIABETES MELLITUS
  16. DIGOXIN. [Concomitant]
     Active Substance: DIGOXIN
     Dosage: 0.125 MG, QD

REACTIONS (11)
  - Escherichia bacteraemia [Not Recovered/Not Resolved]
  - Diarrhoea [Unknown]
  - Bronchitis [Unknown]
  - Death [Fatal]
  - Localised infection [Unknown]
  - Dyspnoea [Unknown]
  - Pathogen resistance [Unknown]
  - Overdose [Unknown]
  - Asthenia [Unknown]
  - Pneumonia [Unknown]
  - Movement disorder [Unknown]

NARRATIVE: CASE EVENT DATE: 20150312
